FAERS Safety Report 9288206 (Version 1)
Quarter: 2013Q2

REPORT INFORMATION
  Report Type: Report from Study
  Country: IT (occurrence: IT)
  Receive Date: 20130514
  Receipt Date: 20130514
  Transmission Date: 20140414
  Serious: Yes (Other)
  Sender: FDA-Public Use
  Company Number: IT-BAXTER-2012BAX001135

PATIENT
  Sex: Male

DRUGS (9)
  1. ENDOXAN BAXTER [Suspect]
     Indication: BURKITT^S LYMPHOMA
  2. HOLOXAN [Suspect]
     Indication: BURKITT^S LYMPHOMA
  3. RITUXIMAB [Suspect]
     Indication: BURKITT^S LYMPHOMA
  4. CARBOPLATIN [Suspect]
     Indication: BURKITT^S LYMPHOMA
  5. CARMUSTINE [Suspect]
     Indication: BURKITT^S LYMPHOMA
  6. ETOPOSIDE [Suspect]
     Indication: BURKITT^S LYMPHOMA
  7. CYTARABINE [Suspect]
     Indication: BURKITT^S LYMPHOMA
  8. MELPHALAN [Suspect]
     Indication: BURKITT^S LYMPHOMA
  9. CISPLATIN [Suspect]
     Indication: BURKITT^S LYMPHOMA

REACTIONS (2)
  - Neutropenia [Unknown]
  - Infection [Unknown]
